FAERS Safety Report 25655810 (Version 2)
Quarter: 2025Q3

REPORT INFORMATION
  Report Type: Report from Study
  Country: EU (occurrence: EU)
  Receive Date: 20250807
  Receipt Date: 20250909
  Transmission Date: 20251021
  Serious: Yes (Hospitalization, Other)
  Sender: AMGEN
  Company Number: EU-AMGEN-DEUNI2025154921

PATIENT
  Sex: Male

DRUGS (4)
  1. APREMILAST [Suspect]
     Active Substance: APREMILAST
     Indication: Psoriatic arthropathy
     Dosage: 60 MILLIGRAM, QD
     Route: 065
     Dates: start: 20221004
  2. IBUPROFEN [Concomitant]
     Active Substance: IBUPROFEN
     Dosage: 800 MILLIGRAM 1 DAY PER WEEK
     Dates: start: 20220106, end: 20240218
  3. Laxan [Concomitant]
  4. PANTOPRAZOLE [Concomitant]
     Active Substance: PANTOPRAZOLE

REACTIONS (7)
  - Rectal ulcer haemorrhage [Not Recovered/Not Resolved]
  - Stoma prolapse [Not Recovered/Not Resolved]
  - Stoma prolapse [Not Recovered/Not Resolved]
  - Rectal stenosis [Not Recovered/Not Resolved]
  - Anal stenosis [Not Recovered/Not Resolved]
  - Staphylococcal infection [Unknown]
  - Stoma prolapse [Not Recovered/Not Resolved]

NARRATIVE: CASE EVENT DATE: 20240601
